FAERS Safety Report 9141379 (Version 1)
Quarter: 2013Q1

REPORT INFORMATION
  Report Type: Spontaneous
  Country: US (occurrence: US)
  Receive Date: 20130305
  Receipt Date: 20130305
  Transmission Date: 20140127
  Serious: No
  Sender: FDA-Public Use
  Company Number: US-AMGEN-USASP2013007613

PATIENT
  Age: 42 Year
  Sex: Male
  Weight: 108.39 kg

DRUGS (1)
  1. ENBREL [Suspect]
     Indication: RHEUMATOID ARTHRITIS
     Dosage: 50 MG, QWK
     Route: 058
     Dates: start: 20110501

REACTIONS (3)
  - Joint swelling [Not Recovered/Not Resolved]
  - Incorrect storage of drug [Unknown]
  - Swelling [Unknown]
